FAERS Safety Report 12681131 (Version 1)
Quarter: 2016Q3

REPORT INFORMATION
  Report Type: Report from Study
  Country: JP (occurrence: JP)
  Receive Date: 20160824
  Receipt Date: 20160824
  Transmission Date: 20161109
  Serious: Yes (Death, Life-Threatening, Hospitalization)
  Sender: FDA-Public Use
  Company Number: JP-SA-THYM-1003672

PATIENT
  Age: 74 Year
  Sex: Female
  Weight: 53.2 kg

DRUGS (15)
  1. THYMOGLOBULINE [Suspect]
     Active Substance: LAPINE T-LYMPHOCYTE IMMUNE GLOBULIN
     Indication: APLASTIC ANAEMIA
     Dosage: 213 MG, UNK
     Route: 042
     Dates: start: 20130218, end: 20130221
  2. ELNEOPA NO 1 [Concomitant]
     Indication: PROPHYLAXIS
     Dates: start: 20130215, end: 20130221
  3. SOLU-MEDROL [Concomitant]
     Active Substance: METHYLPREDNISOLONE SODIUM SUCCINATE
     Indication: PROPHYLAXIS
     Dates: start: 20130218, end: 20130221
  4. PREDNISOLONE. [Concomitant]
     Active Substance: PREDNISOLONE
     Indication: APLASTIC ANAEMIA
     Route: 048
     Dates: start: 20130205, end: 20130221
  5. MYSLEE [Concomitant]
     Active Substance: ZOLPIDEM TARTRATE
     Indication: PROPHYLAXIS
     Dates: start: 20130117, end: 20130221
  6. DIFLUCAN [Concomitant]
     Active Substance: FLUCONAZOLE
     Indication: PROPHYLAXIS
     Route: 048
     Dates: start: 20130205, end: 20130221
  7. POLARAMINE [Concomitant]
     Active Substance: DEXCHLORPHENIRAMINE MALEATE
     Indication: PROPHYLAXIS
     Dates: start: 20130218, end: 20130221
  8. HACHIAZULE [Concomitant]
     Indication: STOMATITIS
     Dates: start: 20130118, end: 20130221
  9. BAKTAR [Concomitant]
     Active Substance: SULFAMETHOXAZOLE\TRIMETHOPRIM
     Indication: PROPHYLAXIS
     Route: 048
     Dates: start: 20130205, end: 20130221
  10. PREDNISOLONE. [Concomitant]
     Active Substance: PREDNISOLONE
     Indication: PROPHYLAXIS
     Route: 048
     Dates: start: 20130205, end: 20130221
  11. NEORAL [Concomitant]
     Active Substance: CYCLOSPORINE
     Indication: APLASTIC ANAEMIA
     Route: 048
     Dates: start: 20130218, end: 20130221
  12. GRAN [Concomitant]
     Active Substance: FILGRASTIM
     Indication: APLASTIC ANAEMIA
     Dosage: SYRINGE
     Dates: start: 20130218, end: 20130221
  13. TAKEPRON OD [Concomitant]
     Active Substance: LANSOPRAZOLE
     Indication: PROPHYLAXIS
     Route: 048
     Dates: start: 20130205, end: 20130221
  14. GRAN [Concomitant]
     Active Substance: FILGRASTIM
     Indication: PROPHYLAXIS
     Dosage: SYRINGE
     Dates: start: 20130218, end: 20130221
  15. CEFOTAXIME [Concomitant]
     Active Substance: CEFOTAXIME SODIUM
     Indication: PROPHYLAXIS
     Dates: start: 20130221, end: 20130221

REACTIONS (16)
  - Blood pressure decreased [Fatal]
  - Diarrhoea [Unknown]
  - Melaena [Unknown]
  - Gastrointestinal haemorrhage [Fatal]
  - Platelet count decreased [Not Recovered/Not Resolved]
  - Anaemia [Not Recovered/Not Resolved]
  - Chest pain [Recovering/Resolving]
  - Malaise [Unknown]
  - Sinus tachycardia [Fatal]
  - Nausea [Unknown]
  - Vomiting [Unknown]
  - Chills [Recovering/Resolving]
  - Pyrexia [Recovering/Resolving]
  - White blood cell count decreased [Not Recovered/Not Resolved]
  - Urticaria [Recovering/Resolving]
  - Tachycardia [Recovering/Resolving]

NARRATIVE: CASE EVENT DATE: 20130218
